FAERS Safety Report 12783732 (Version 2)
Quarter: 2016Q4

REPORT INFORMATION
  Report Type: Spontaneous
  Country: GB (occurrence: GB)
  Receive Date: 20160927
  Receipt Date: 20161003
  Transmission Date: 20170207
  Serious: Yes (Hospitalization)
  Sender: FDA-Public Use
  Company Number: GB-SA-2016SA177866

PATIENT
  Sex: Male

DRUGS (2)
  1. PIRITON [Suspect]
     Active Substance: CHLORPHENIRAMINE MALEATE
     Route: 065
  2. FABRAZYME [Suspect]
     Active Substance: AGALSIDASE BETA
     Indication: FABRY^S DISEASE
     Route: 041
     Dates: start: 20160922, end: 20160922

REACTIONS (3)
  - Hot flush [Unknown]
  - Chills [Unknown]
  - Urticaria [Unknown]

NARRATIVE: CASE EVENT DATE: 20160922
